FAERS Safety Report 6003599-7 (Version None)
Quarter: 2008Q4

REPORT INFORMATION
  Report Type: 
  Country: None (occurrence: None)
  Receive Date: 20081216
  Receipt Date: 20081204
  Transmission Date: 20090506
  Serious: Yes (Disabling)
  Sender: FDA-Public Use
  Company Number: JP-PFIZER INC-2008078802

PATIENT

DRUGS (1)
  1. UNASYN [Suspect]
     Indication: CELLULITIS
     Dosage: 3 G, 2X/DAY
     Route: 042
     Dates: start: 20080811, end: 20080817

REACTIONS (1)
  - RENAL FAILURE ACUTE [None]
